FAERS Safety Report 4436760-3 (Version None)
Quarter: 2004Q3

REPORT INFORMATION
  Report Type: 
  Country: None (occurrence: None)
  Receive Date: 20040728
  Receipt Date: 20030807
  Transmission Date: 20050211
  Serious: Yes (Hospitalization)
  Sender: FDA-Public Use
  Company Number: 201893

PATIENT
  Age: 60 Year
  Sex: Male

DRUGS (5)
  1. RITUXAN [Suspect]
     Indication: NON-HODGKIN'S LYMPHOMA
     Dosage: 375 MG/M2, INTRAVENOUS
     Route: 042
     Dates: start: 20030701
  2. CYCLOPHOSPHAMIDE (YCLOPHOSPHAMIDE) [Suspect]
     Dosage: INTRAVENOUS
     Route: 042
     Dates: start: 20030701
  3. DOXORUBICIN (DOXORUBICIN) [Suspect]
     Dosage: INTRAVENOUS
     Route: 042
     Dates: start: 20030701
  4. VINCRISTINE [Suspect]
     Dates: start: 20030701
  5. PREDNISONE [Suspect]
     Dates: start: 20030701

REACTIONS (1)
  - ANGIONEUROTIC OEDEMA [None]
